FAERS Safety Report 9853304 (Version 2)
Quarter: 2014Q1

REPORT INFORMATION
  Report Type: Spontaneous
  Country: TR (occurrence: TR)
  Receive Date: 20140129
  Receipt Date: 20140311
  Transmission Date: 20141002
  Serious: Yes (Other)
  Sender: FDA-Public Use
  Company Number: TR-JNJFOC-20140113907

PATIENT
  Sex: 0

DRUGS (5)
  1. INFLIXIMAB, RECOMBINANT [Suspect]
     Indication: UVEITIS
     Route: 042
  2. INFLIXIMAB, RECOMBINANT [Suspect]
     Indication: BEHCET^S SYNDROME
     Route: 042
  3. AZATHIOPRINE [Suspect]
     Indication: UVEITIS
     Route: 065
  4. CYCLOSPORIN A [Suspect]
     Indication: UVEITIS
     Route: 065
  5. INTERFERON ALFA [Suspect]
     Indication: UVEITIS
     Route: 065

REACTIONS (2)
  - Pulmonary tuberculosis [Unknown]
  - Off label use [Unknown]
